FAERS Safety Report 4663431-0 (Version None)
Quarter: 2005Q2

REPORT INFORMATION
  Report Type: 
  Country: None (occurrence: None)
  Receive Date: 20050517
  Receipt Date: 20050511
  Transmission Date: 20051028
  Serious: Yes (Death, Life-Threatening)
  Sender: FDA-Public Use
  Company Number: 200514235GDDC

PATIENT
  Age: 49 Year
  Sex: Female
  Weight: 125 kg

DRUGS (12)
  1. CLEXANE [Suspect]
     Indication: THROMBOPHLEBITIS
     Route: 058
     Dates: start: 20050209
  2. DICLOCIL [Suspect]
     Indication: ABSCESS
     Route: 042
     Dates: start: 20050209, end: 20050213
  3. DICLOCIL [Suspect]
     Indication: CELLULITIS
     Route: 042
     Dates: start: 20050209, end: 20050213
  4. ACETAMINOPHEN [Suspect]
     Indication: PAIN
     Route: 048
     Dates: start: 20050209
  5. FLIXOTIDE [Concomitant]
     Indication: ASTHMA
     Route: 055
  6. MEGAFOL [Concomitant]
     Route: 048
  7. LASIX [Concomitant]
     Indication: POLYURIA
     Route: 048
  8. VENTOLIN HFA [Concomitant]
     Indication: ASTHMA
     Route: 055
  9. MORPHINE SULFATE [Concomitant]
     Indication: PAIN
     Dates: start: 20050209
  10. TEMAZE [Concomitant]
     Route: 048
  11. ACETAMINOPHEN [Concomitant]
     Route: 048
     Dates: start: 20050209
  12. LOSEC [Concomitant]
     Route: 048

REACTIONS (8)
  - BLOOD BILIRUBIN INCREASED [None]
  - DEATH [None]
  - ENCEPHALOPATHY [None]
  - HYPOGLYCAEMIA [None]
  - LIVER FUNCTION TEST ABNORMAL [None]
  - RENAL FAILURE [None]
  - RENAL IMPAIRMENT [None]
  - WHITE BLOOD CELL COUNT INCREASED [None]
